FAERS Safety Report 11865206 (Version 1)
Quarter: 2015Q4

REPORT INFORMATION
  Report Type: Spontaneous
  Country: US (occurrence: US)
  Receive Date: 20151223
  Receipt Date: 20151223
  Transmission Date: 20160305
  Serious: No
  Sender: FDA-Public Use
  Company Number: US-PFIZER INC-2015332304

PATIENT
  Age: 71 Year
  Sex: Male
  Weight: 104 kg

DRUGS (3)
  1. SUTENT [Suspect]
     Active Substance: SUNITINIB MALATE
     Indication: RENAL CANCER METASTATIC
     Dosage: 37.5 EVERY OTHER DAY 2 WEEKS 1 WEEK OFF
     Route: 048
     Dates: start: 201503
  2. SUTENT [Suspect]
     Active Substance: SUNITINIB MALATE
     Dosage: UNK, 1X/DAY
     Route: 048
     Dates: start: 201506
  3. SUTENT [Suspect]
     Active Substance: SUNITINIB MALATE
     Dosage: 50 EVERY DAY 2 WEEKS 1 WEEK OFF
     Dates: start: 201506

REACTIONS (4)
  - Dysphagia [Not Recovered/Not Resolved]
  - Dyspepsia [Not Recovered/Not Resolved]
  - Gait disturbance [Not Recovered/Not Resolved]
  - Pain in extremity [Not Recovered/Not Resolved]
